FAERS Safety Report 7672321-0 (Version None)
Quarter: 2011Q3

REPORT INFORMATION
  Report Type: 
  Country: None (occurrence: None)
  Receive Date: 20110809
  Receipt Date: 20110803
  Transmission Date: 20111222
  Serious: Yes (Death, Life-Threatening)
  Sender: FDA-Public Use
  Company Number: FR-PFIZER INC-2011145959

PATIENT
  Age: 74 Year
  Sex: Male

DRUGS (6)
  1. CORDARONE [Concomitant]
     Indication: ARRHYTHMIA
     Dosage: 200 MG, 1X/DAY
     Route: 048
     Dates: start: 20110329, end: 20110523
  2. OMEPRAZOLE [Concomitant]
     Dosage: 20 MG, 1X/DAY
     Route: 048
     Dates: end: 20110523
  3. INSULIN [Concomitant]
  4. CALCIPARINE [Concomitant]
     Dosage: 0.40 ML, DAILY
     Route: 058
     Dates: start: 20110509, end: 20110521
  5. ZYVOX [Suspect]
     Indication: STAPHYLOCOCCAL INFECTION
     Dosage: 600 MG, 2X/DAY
     Route: 042
     Dates: start: 20110509, end: 20110520
  6. ASPIRIN [Concomitant]
     Dosage: 75 MG, 1X/DAY
     Route: 048
     Dates: end: 20110521

REACTIONS (4)
  - HEPATITIS [None]
  - APLASIA PURE RED CELL [None]
  - LACTIC ACIDOSIS [None]
  - THROMBOCYTOPENIA [None]
